FAERS Safety Report 9642963 (Version 1)
Quarter: 2013Q4

REPORT INFORMATION
  Report Type: Spontaneous
  Country: GB (occurrence: GB)
  Receive Date: 20131024
  Receipt Date: 20131024
  Transmission Date: 20140711
  Serious: Yes (Other)
  Sender: FDA-Public Use
  Company Number: GB-AMGEN-GBRSP2013075098

PATIENT
  Age: 71 Year
  Sex: Female

DRUGS (8)
  1. ENBREL [Suspect]
     Indication: RHEUMATOID ARTHRITIS
     Dosage: UNK
     Route: 065
  2. RANITIDINE [Concomitant]
     Dosage: UNK
     Route: 048
  3. METOCLOPRAMIDE [Concomitant]
     Dosage: UNK
  4. HYPROMELLOSE [Concomitant]
     Dosage: UNK
  5. BENDROFLUMETHIAZIDE [Concomitant]
     Dosage: UNK
  6. CALCICHEW-D3 [Concomitant]
     Dosage: UNK
  7. ALENDRONATE SODIUM [Concomitant]
     Dosage: UNK
  8. TRAMADOL [Concomitant]
     Dosage: UNK

REACTIONS (7)
  - Paralysis [Unknown]
  - Musculoskeletal stiffness [Unknown]
  - Nervousness [Unknown]
  - Balance disorder [Unknown]
  - Vision blurred [Unknown]
  - Hypoaesthesia [Unknown]
  - Paraesthesia [Unknown]
